FAERS Safety Report 17568007 (Version 4)
Quarter: 2020Q2

REPORT INFORMATION
  Report Type: Spontaneous
  Country: AU (occurrence: AU)
  Receive Date: 20200320
  Receipt Date: 20200611
  Transmission Date: 20200713
  Serious: Yes (Hospitalization)
  Sender: FDA-Public Use
  Company Number: AU-MYLANLABS-2020M1028009

PATIENT
  Age: 17 Year
  Sex: Male

DRUGS (3)
  1. LITHIUM. [Concomitant]
     Active Substance: LITHIUM
     Dosage: 900 MILLIGRAM, BID
  2. CLOZARIL [Suspect]
     Active Substance: CLOZAPINE
     Indication: SCHIZOPHRENIA
     Dosage: 175 MILLIGRAM
     Route: 048
     Dates: start: 20200220, end: 20200308
  3. CLOZARIL [Suspect]
     Active Substance: CLOZAPINE
     Indication: PSYCHOTIC DISORDER
     Dosage: UNK
     Route: 048
     Dates: start: 20200512, end: 2020

REACTIONS (7)
  - Myocarditis [Unknown]
  - Cholinergic rebound syndrome [Unknown]
  - Malaise [Unknown]
  - Monocytosis [Unknown]
  - Nausea [Unknown]
  - Neutrophilia [Unknown]
  - Vomiting [Unknown]

NARRATIVE: CASE EVENT DATE: 202003
